FAERS Safety Report 10781786 (Version 2)
Quarter: 2015Q1

REPORT INFORMATION
  Report Type: Report from Study
  Country: RO (occurrence: RO)
  Receive Date: 20150210
  Receipt Date: 20150213
  Transmission Date: 20150721
  Serious: Yes (Hospitalization)
  Sender: FDA-Public Use
  Company Number: RO-ASTELLAS-2015US003376

PATIENT

DRUGS (5)
  1. CELLCEPT [Suspect]
     Active Substance: MYCOPHENOLATE MOFETIL\MYCOPHENOLATE MOFETIL HYDROCHLORIDE
     Indication: RENAL TRANSPLANT
     Dosage: 1500 MG, UNKNOWN FREQ.
     Route: 065
     Dates: start: 20071015
  2. TACROLIMUS. [Suspect]
     Active Substance: TACROLIMUS
     Indication: RENAL TRANSPLANT
     Dosage: DAILY DOSE 1.5 MG,
     Route: 065
     Dates: start: 20071015
  3. PREDNISON [Suspect]
     Active Substance: PREDNISONE
     Indication: RENAL TRANSPLANT
     Dosage: 5 MG, UNKNOWN FREQ.
     Route: 065
     Dates: start: 20071015
  4. INSULINA                           /01223201/ [Concomitant]
     Active Substance: INSULIN NOS
     Indication: DIABETES MELLITUS
     Dosage: 36UMG, UNKNOWN FREQ.
     Route: 058
     Dates: start: 20140615
  5. METFORMINA + GLIBENCLAMIDA [Concomitant]
     Indication: DIABETES MELLITUS
     Dosage: 402/2.5MG, UNKNOWN FREQ.
     Route: 048
     Dates: start: 20091015, end: 20140615

REACTIONS (1)
  - Ischaemic stroke [Recovered/Resolved]

NARRATIVE: CASE EVENT DATE: 20140615
